FAERS Safety Report 15159311 (Version 1)
Quarter: 2018Q3

REPORT INFORMATION
  Report Type: Spontaneous
  Country: US (occurrence: US)
  Receive Date: 20180718
  Receipt Date: 20180718
  Transmission Date: 20181010
  Serious: Yes (Other)
  Sender: FDA-Public Use
  Company Number: US-JNJFOC-20180719606

PATIENT
  Age: 59 Year
  Sex: Male

DRUGS (1)
  1. INVOKANA [Suspect]
     Active Substance: CANAGLIFLOZIN
     Indication: PRODUCT USED FOR UNKNOWN INDICATION
     Route: 048
     Dates: start: 20140623

REACTIONS (5)
  - Cellulitis [Unknown]
  - Osteomyelitis [Unknown]
  - Dry gangrene [Unknown]
  - Blister infected [Unknown]
  - Toe amputation [Unknown]

NARRATIVE: CASE EVENT DATE: 2015
